FAERS Safety Report 8812675 (Version 1)
Quarter: 2012Q4

REPORT INFORMATION
  Report Type: 
  Country: TR (occurrence: TR)
  Receive Date: 20120927
  Receipt Date: 20120927
  Transmission Date: 20130627
  Serious: Yes (Hospitalization, Other)
  Sender: FDA-Public Use
  Company Number: PHHY2012TR082575

PATIENT
  Age: 12 Year
  Sex: Female

DRUGS (2)
  1. ISONIAZID [Suspect]
     Indication: TUBERCULOSIS
     Dosage: 10 mg/kg, UNK
  2. PYRIDOXINE [Concomitant]
     Indication: TUBERCULOSIS
     Dosage: 25 mg, UNK

REACTIONS (5)
  - Cerebellar syndrome [Recovered/Resolved]
  - Dizziness [Recovered/Resolved]
  - Tremor [Recovered/Resolved]
  - Ataxia [Recovered/Resolved]
  - Drug level increased [Recovered/Resolved]
